FAERS Safety Report 7712247-7 (Version None)
Quarter: 2011Q3

REPORT INFORMATION
  Report Type: 
  Country: None (occurrence: None)
  Receive Date: 20110826
  Receipt Date: 20110817
  Transmission Date: 20111222
  Serious: Yes (Hospitalization)
  Sender: FDA-Public Use
  Company Number: US-AMGEN-USASP2011031354

PATIENT
  Age: 44 Year
  Sex: Female

DRUGS (3)
  1. ENBREL [Suspect]
     Indication: PSORIASIS
     Dosage: 50 MG, QWK
     Dates: start: 20110401
  2. PAXIL [Concomitant]
  3. CELEXA [Concomitant]

REACTIONS (7)
  - INJECTION SITE PAIN [None]
  - PSORIASIS [None]
  - HYPERHIDROSIS [None]
  - ANTIDEPRESSANT THERAPY [None]
  - CHEST PAIN [None]
  - NERVOUSNESS [None]
  - HYPOTHYROIDISM [None]
